FAERS Safety Report 21465607 (Version 1)
Quarter: 2022Q4

REPORT INFORMATION
  Report Type: Spontaneous
  Country: GB (occurrence: GB)
  Receive Date: 20221017
  Receipt Date: 20221017
  Transmission Date: 20230113
  Serious: Yes (Other)
  Sender: FDA-Public Use
  Company Number: GB-MHRA-MED-202210131052081590-LFQCH

PATIENT
  Age: 80 Year
  Sex: Female
  Weight: 34 kg

DRUGS (7)
  1. LENALIDOMIDE [Suspect]
     Active Substance: LENALIDOMIDE
     Indication: Plasma cell myeloma
     Dosage: 15MG ONCE A DAY AT BEDTIME; ;
     Route: 065
     Dates: start: 20211109, end: 20220404
  2. APIXABAN [Concomitant]
     Active Substance: APIXABAN
     Indication: Atrial thrombosis
     Route: 065
  3. ACCORD-UK ACICLOVIR [Concomitant]
     Indication: Antiviral prophylaxis
     Route: 065
  4. MORPHINE [Concomitant]
     Active Substance: MORPHINE
     Indication: Pain
  5. ALENDRONIC ACID [Concomitant]
     Active Substance: ALENDRONIC ACID
     Indication: Bone loss
     Route: 065
  6. OMEPRAZOLE [Concomitant]
     Active Substance: OMEPRAZOLE
     Indication: Gastrooesophageal reflux disease
     Route: 065
  7. SIMVASTATIN [Concomitant]
     Active Substance: SIMVASTATIN
     Indication: Hyperlipidaemia
     Route: 065

REACTIONS (1)
  - Cachexia [Recovered/Resolved]
